FAERS Safety Report 6508910-6 (Version None)
Quarter: 2009Q4

REPORT INFORMATION
  Report Type: 
  Country: None (occurrence: None)
  Receive Date: 20091221
  Receipt Date: 20090915
  Transmission Date: 20100525
  Serious: No
  Sender: FDA-Public Use
  Company Number: US-ASTRAZENECA-2009SE13681

PATIENT
  Age: 74 Year
  Sex: Female
  Weight: 68.5 kg

DRUGS (8)
  1. CRESTOR [Suspect]
     Indication: HYPERCHOLESTEROLAEMIA
     Route: 048
     Dates: start: 20090819
  2. CALTRATE [Concomitant]
  3. TOPROL-XL [Concomitant]
  4. LOTREL [Concomitant]
  5. ALLEGRA [Concomitant]
  6. PRILOSEC [Concomitant]
     Indication: DYSPEPSIA
  7. ASPIRIN [Concomitant]
  8. BAUCH AND LOMB EYE SUPPLEMENT [Concomitant]

REACTIONS (1)
  - DYSPEPSIA [None]
